FAERS Safety Report 9883367 (Version 2)
Quarter: 2014Q1

REPORT INFORMATION
  Report Type: Spontaneous
  Country: US (occurrence: US)
  Receive Date: 20140210
  Receipt Date: 20140307
  Transmission Date: 20141002
  Serious: Yes (Hospitalization)
  Sender: FDA-Public Use
  Company Number: US-BIOGENIDEC-2014BI011728

PATIENT
  Age: 51 Year
  Sex: Female

DRUGS (16)
  1. TYSABRI [Suspect]
     Indication: RELAPSING-REMITTING MULTIPLE SCLEROSIS
     Route: 042
     Dates: start: 20120523
  2. AVONEX [Concomitant]
     Indication: MULTIPLE SCLEROSIS
     Route: 030
  3. AMANTADINE [Concomitant]
  4. NUVIGIL [Concomitant]
  5. ASPIRIN [Concomitant]
  6. BACLOFEN [Concomitant]
  7. VITAMIN D [Concomitant]
  8. CELEXA [Concomitant]
  9. VITAMIN B12 [Concomitant]
  10. FLAXSEED [Concomitant]
  11. CRANBERRY [Concomitant]
  12. NEURONTIN [Concomitant]
  13. SYNTHOID [Concomitant]
  14. MELATONIN [Concomitant]
  15. TIZANIDINE [Concomitant]
  16. OMEGA 3 [Concomitant]

REACTIONS (1)
  - Rectocele [Recovered/Resolved]
